FAERS Safety Report 19444994 (Version 1)
Quarter: 2021Q2

REPORT INFORMATION
  Report Type: Spontaneous
  Country: CN (occurrence: CN)
  Receive Date: 20210622
  Receipt Date: 20210622
  Transmission Date: 20210717
  Serious: Yes (Other)
  Sender: FDA-Public Use
  Company Number: CN-JNJFOC-20210637939

PATIENT
  Age: 54 Year
  Sex: Female
  Weight: 45 kg

DRUGS (1)
  1. TRAMADOL HYDROCHLORIDE. [Suspect]
     Active Substance: TRAMADOL HYDROCHLORIDE
     Indication: HEADACHE
     Dosage: 100 MILLIGRAM, 1/DAY
     Route: 030
     Dates: start: 20210527, end: 20210527

REACTIONS (3)
  - Dizziness [Recovering/Resolving]
  - Discomfort [Recovering/Resolving]
  - Vomiting [Recovering/Resolving]

NARRATIVE: CASE EVENT DATE: 20210528
